FAERS Safety Report 20168473 (Version 1)
Quarter: 2021Q4

REPORT INFORMATION
  Report Type: Spontaneous
  Country: CN (occurrence: CN)
  Receive Date: 20211210
  Receipt Date: 20211210
  Transmission Date: 20220303
  Serious: Yes (Hospitalization, Other)
  Sender: FDA-Public Use
  Company Number: CN-VIWITPHARMA-2021VWTLIT00009

PATIENT
  Age: 54 Year
  Sex: Female

DRUGS (10)
  1. SERTRALINE [Suspect]
     Active Substance: SERTRALINE HYDROCHLORIDE
     Indication: Product used for unknown indication
     Dosage: 100 MG/DAY
     Route: 065
  2. SERTRALINE [Suspect]
     Active Substance: SERTRALINE HYDROCHLORIDE
     Route: 065
  3. QUETIAPINE [Suspect]
     Active Substance: QUETIAPINE
     Indication: Product used for unknown indication
     Dosage: 200 MG/DAY
     Route: 065
  4. QUETIAPINE [Suspect]
     Active Substance: QUETIAPINE
     Dosage: 200 MG/NIGHT
     Route: 065
  5. CLONAZEPAM [Concomitant]
     Active Substance: CLONAZEPAM
     Indication: Anxiety
     Dosage: 2MG/DAY
     Route: 065
  6. ZOPICLONE [Concomitant]
     Active Substance: ZOPICLONE
     Indication: Insomnia
     Dosage: 7.5 MG/NIGHT
     Route: 065
  7. OLANZAPINE [Suspect]
     Active Substance: OLANZAPINE
     Indication: Product used for unknown indication
     Dosage: 5 MG/DAY
     Route: 048
  8. OLANZAPINE [Suspect]
     Active Substance: OLANZAPINE
     Dosage: TITRATED
     Route: 048
  9. OLANZAPINE [Suspect]
     Active Substance: OLANZAPINE
     Route: 048
  10. HALOPERIDOL [Suspect]
     Active Substance: HALOPERIDOL
     Indication: Product used for unknown indication
     Route: 030

REACTIONS (9)
  - Neuroleptic malignant syndrome [Recovering/Resolving]
  - Acute myocardial infarction [Recovering/Resolving]
  - Hyperhidrosis [Recovering/Resolving]
  - Muscle rigidity [Recovering/Resolving]
  - Mutism [Recovering/Resolving]
  - Negativism [Recovering/Resolving]
  - Hyperthermia [Recovering/Resolving]
  - Somnolence [Recovering/Resolving]
  - Sinus tachycardia [Recovering/Resolving]
